FAERS Safety Report 24464613 (Version 1)
Quarter: 2024Q4

REPORT INFORMATION
  Report Type: Report from Study
  Country: US (occurrence: US)
  Receive Date: 20241018
  Receipt Date: 20241018
  Transmission Date: 20250115
  Serious: No
  Sender: ROCHE
  Company Number: US-ROCHE-3509102

PATIENT
  Age: 61 Year
  Sex: Female
  Weight: 65.77 kg

DRUGS (4)
  1. XOLAIR [Suspect]
     Active Substance: OMALIZUMAB
     Indication: Asthma
     Route: 058
     Dates: start: 2023
  2. XOLAIR [Suspect]
     Active Substance: OMALIZUMAB
  3. BENADRYL [Concomitant]
     Active Substance: DIPHENHYDRAMINE HYDROCHLORIDE
  4. SUDAFED [Concomitant]
     Active Substance: PSEUDOEPHEDRINE HYDROCHLORIDE

REACTIONS (9)
  - Cough [Recovered/Resolved]
  - Nasopharyngitis [Recovered/Resolved]
  - Gastrointestinal disorder [Not Recovered/Not Resolved]
  - Diarrhoea [Recovered/Resolved]
  - Arthralgia [Recovering/Resolving]
  - Bone pain [Recovering/Resolving]
  - Pain [Recovering/Resolving]
  - Fatigue [Not Recovered/Not Resolved]
  - Abdominal pain upper [Unknown]

NARRATIVE: CASE EVENT DATE: 20230101
